FAERS Safety Report 10527071 (Version 2)
Quarter: 2014Q4

REPORT INFORMATION
  Report Type: Spontaneous
  Country: US (occurrence: None)
  Receive Date: 20141016
  Receipt Date: 20141104
  Transmission Date: 20150528
  Serious: Yes (Other)
  Sender: FDA-Public Use
  Company Number: 2014AP004891

PATIENT
  Age: 17 Year
  Sex: Male
  Weight: 68 kg

DRUGS (3)
  1. FERRIPROX [Suspect]
     Active Substance: DEFERIPRONE
     Indication: THALASSAEMIA
     Route: 048
     Dates: start: 20140226
  2. CLARITIN /00413701/ (GLICLAZIDE) [Concomitant]
  3. BUDESONIDE (BUDESONIDE) [Concomitant]
     Active Substance: BUDESONIDE

REACTIONS (2)
  - Viral infection [None]
  - Neutropenia [None]

NARRATIVE: CASE EVENT DATE: 20140902
